FAERS Safety Report 7825414-9 (Version None)
Quarter: 2011Q4

REPORT INFORMATION
  Report Type: 
  Country: None (occurrence: None)
  Receive Date: 20111017
  Receipt Date: 20110928
  Transmission Date: 20120403
  Serious: Yes (Hospitalization)
  Sender: FDA-Public Use
  Company Number: 2011PROUSA00682

PATIENT
  Age: 71 Year
  Sex: Male
  Weight: 79.8 kg

DRUGS (2)
  1. PROVENGE [Suspect]
     Dosage: PROVENGE (SIPULEUCEL-T) SUSPENSION, 250ML, SINGLE, INTRAVENOUS
     Route: 042
     Dates: start: 20110922, end: 20110922
  2. PROVENGE [Suspect]
     Indication: PROSTATE CANCER METASTATIC
     Dosage: 250ML, SINGLE, INTRAVENOUS
     Route: 042
     Dates: start: 20110818, end: 20110818

REACTIONS (2)
  - CONFUSIONAL STATE [None]
  - BLOOD URINE PRESENT [None]
